FAERS Safety Report 12559020 (Version 2)
Quarter: 2016Q4

REPORT INFORMATION
  Report Type: Spontaneous
  Country: US (occurrence: US)
  Receive Date: 20160715
  Receipt Date: 20161012
  Transmission Date: 20170207
  Serious: No
  Sender: FDA-Public Use
  Company Number: US-TEVA-660147USA

PATIENT
  Sex: Female

DRUGS (6)
  1. MELATONIN [Concomitant]
     Active Substance: MELATONIN
  2. GRALISE [Concomitant]
     Active Substance: GABAPENTIN
  3. ZECUITY [Suspect]
     Active Substance: SUMATRIPTAN SUCCINATE
     Route: 062
  4. VERAPAMIL [Concomitant]
     Active Substance: VERAPAMIL HYDROCHLORIDE
  5. SKELAXIN [Concomitant]
     Active Substance: METAXALONE
  6. CAMBIA [Concomitant]
     Active Substance: DICLOFENAC POTASSIUM

REACTIONS (4)
  - Application site pain [Recovered/Resolved]
  - Application site erythema [Recovered/Resolved]
  - Product leakage [Unknown]
  - Wrong technique in product usage process [Unknown]
